FAERS Safety Report 11540468 (Version 1)
Quarter: 2015Q3

REPORT INFORMATION
  Report Type: Spontaneous
  Country: US (occurrence: US)
  Receive Date: 20150923
  Receipt Date: 20150923
  Transmission Date: 20151125
  Serious: No
  Sender: FDA-Public Use
  Company Number: US-BEH-2014047192

PATIENT
  Sex: Male
  Weight: 78 kg

DRUGS (33)
  1. PRIVIGEN [Suspect]
     Active Substance: HUMAN IMMUNOGLOBULIN G
     Indication: IMMUNODEFICIENCY COMMON VARIABLE
     Route: 042
  2. PROTONIX [Concomitant]
     Active Substance: PANTOPRAZOLE SODIUM
  3. BENZONATATE. [Concomitant]
     Active Substance: BENZONATATE
  4. CENTRUM SILVER MULTIVITAMIN [Concomitant]
  5. OMNICEF [Concomitant]
     Active Substance: CEFDINIR
  6. SODIUM CHLORIDE. [Concomitant]
     Active Substance: SODIUM CHLORIDE
  7. BIAXIN [Concomitant]
     Active Substance: CLARITHROMYCIN
  8. CLONAZEPAM. [Concomitant]
     Active Substance: CLONAZEPAM
  9. HYDRALAZINE [Concomitant]
     Active Substance: HYDRALAZINE HYDROCHLORIDE
  10. LANTAOPROST [Concomitant]
  11. NICOTINE TRANSDERMAL SYSTEM [Concomitant]
     Active Substance: NICOTINE
  12. ALBUTEROL. [Concomitant]
     Active Substance: ALBUTEROL
  13. HEPARIN [Concomitant]
     Active Substance: HEPARIN SODIUM
  14. OXYGEN. [Concomitant]
     Active Substance: OXYGEN
  15. BACTRIM [Concomitant]
     Active Substance: SULFAMETHOXAZOLE\TRIMETHOPRIM
  16. TAMSULOSIN [Concomitant]
     Active Substance: TAMSULOSIN
  17. METAMUCIL [Concomitant]
     Active Substance: PLANTAGO SEED
  18. CALTRATE WITH VITAMIN D [Concomitant]
     Active Substance: CALCIUM CARBONATE\CHOLECALCIFEROL
  19. AMLODIPINE [Concomitant]
     Active Substance: AMLODIPINE BESYLATE
  20. ACETYLCYSTEINE. [Concomitant]
     Active Substance: ACETYLCYSTEINE
  21. CARVEDILOL. [Concomitant]
     Active Substance: CARVEDILOL
  22. DIPHENHYDRAMINE. [Concomitant]
     Active Substance: DIPHENHYDRAMINE
  23. CRESTOR [Concomitant]
     Active Substance: ROSUVASTATIN CALCIUM
  24. IPRATROPIUM [Concomitant]
     Active Substance: IPRATROPIUM
  25. GUAIFENESIN. [Concomitant]
     Active Substance: GUAIFENESIN
  26. NAC [Concomitant]
  27. ASTELIN [Concomitant]
     Active Substance: AZELASTINE HYDROCHLORIDE
  28. LEVAQUIN [Concomitant]
     Active Substance: LEVOFLOXACIN
  29. EPIPEN [Concomitant]
     Active Substance: EPINEPHRINE
  30. CALCIUM [Concomitant]
     Active Substance: CALCIUM
  31. CIALIS [Concomitant]
     Active Substance: TADALAFIL
  32. XALATAN [Concomitant]
     Active Substance: LATANOPROST
  33. CETIRIZINE [Concomitant]
     Active Substance: CETIRIZINE HYDROCHLORIDE

REACTIONS (3)
  - Incorrect drug administration rate [Unknown]
  - Dizziness [Unknown]
  - Blood pressure increased [Unknown]
